FAERS Safety Report 24444093 (Version 2)
Quarter: 2024Q4

REPORT INFORMATION
  Report Type: Report from Study
  Country: US (occurrence: US)
  Receive Date: 20241016
  Receipt Date: 20241017
  Transmission Date: 20250115
  Serious: No
  Sender: ROCHE
  Company Number: US-ROCHE-2544108

PATIENT
  Age: 14 Year
  Sex: Female

DRUGS (3)
  1. RITUXAN [Suspect]
     Active Substance: RITUXIMAB
     Indication: Encephalitis
     Dosage: EVERY 6 MONTHS FOR 1 YEAR
     Route: 065
  2. RITUXAN [Suspect]
     Active Substance: RITUXIMAB
     Indication: Encephalomyelitis
     Route: 065
     Dates: start: 201903, end: 201907
  3. RITUXAN [Suspect]
     Active Substance: RITUXIMAB
     Indication: Immune system disorder

REACTIONS (6)
  - Off label use [Unknown]
  - Off label use [Unknown]
  - Social avoidant behaviour [Not Recovered/Not Resolved]
  - Anger [Not Recovered/Not Resolved]
  - Obsessive-compulsive disorder [Not Recovered/Not Resolved]
  - Anxiety [Not Recovered/Not Resolved]

NARRATIVE: CASE EVENT DATE: 20190301
